FAERS Safety Report 9780467 (Version 2)
Quarter: 2014Q1

REPORT INFORMATION
  Report Type: Spontaneous
  Country: US (occurrence: US)
  Receive Date: 20131224
  Receipt Date: 20140110
  Transmission Date: 20141002
  Serious: No
  Sender: FDA-Public Use
  Company Number: US-BIOGENIDEC-2013BI122775

PATIENT
  Age: 69 Year
  Sex: Female

DRUGS (8)
  1. AVONEX [Suspect]
     Indication: MULTIPLE SCLEROSIS
     Route: 030
     Dates: start: 1999
  2. AVONEX [Suspect]
     Indication: MULTIPLE SCLEROSIS
     Route: 030
     Dates: start: 19990921
  3. AVONEX [Suspect]
     Indication: MULTIPLE SCLEROSIS
     Route: 030
     Dates: start: 20090302
  4. ALPRAZOLAM [Concomitant]
  5. ATENOLOL [Concomitant]
  6. CARBAMAZEPINE [Concomitant]
  7. DIOVAN [Concomitant]
  8. HYDROCHLOROTHIAZIDE [Concomitant]

REACTIONS (10)
  - Fall [Recovered/Resolved]
  - Contusion [Unknown]
  - Injection site mass [Not Recovered/Not Resolved]
  - Erythema [Recovered/Resolved]
  - Fear of injection [Not Recovered/Not Resolved]
  - Inappropriate schedule of drug administration [Not Recovered/Not Resolved]
  - Injection site rash [Recovered/Resolved]
  - Limb injury [Not Recovered/Not Resolved]
  - Pain in extremity [Not Recovered/Not Resolved]
  - Injection site pain [Recovered/Resolved]
